FAERS Safety Report 10672790 (Version 2)
Quarter: 2014Q4

REPORT INFORMATION
  Report Type: Spontaneous
  Country: US (occurrence: US)
  Receive Date: 20141223
  Receipt Date: 20141223
  Transmission Date: 20150529
  Serious: Yes (Hospitalization)
  Sender: FDA-Public Use
  Company Number: US-ABBVIE-14P-163-1310635-00

PATIENT
  Age: 59 Year
  Sex: Female
  Weight: 80.81 kg

DRUGS (9)
  1. SOMA [Concomitant]
     Active Substance: CARISOPRODOL
     Indication: BACK PAIN
     Route: 065
  2. LEVOTHYROXINE [Concomitant]
     Active Substance: LEVOTHYROXINE
     Indication: HYPOTHYROIDISM
     Route: 065
  3. TRICOR [Suspect]
     Active Substance: FENOFIBRATE
     Indication: BLOOD TRIGLYCERIDES INCREASED
     Route: 048
     Dates: start: 201402, end: 201403
  4. TRICOR [Suspect]
     Active Substance: FENOFIBRATE
     Route: 048
     Dates: start: 201404, end: 201407
  5. PROPRANOLOL [Concomitant]
     Active Substance: PROPRANOLOL\PROPRANOLOL HYDROCHLORIDE
     Indication: HYPERTENSION
     Route: 065
  6. HYDROCODONE [Concomitant]
     Active Substance: HYDROCODONE
     Indication: BACK PAIN
     Route: 065
  7. FENOFIBRATE. [Suspect]
     Active Substance: FENOFIBRATE
     Indication: BLOOD TRIGLYCERIDES INCREASED
     Route: 048
     Dates: start: 201403, end: 201403
  8. LIOTHYRONINE [Concomitant]
     Active Substance: LIOTHYRONINE
     Indication: HYPOTHYROIDISM
     Route: 065
  9. TRICOR [Suspect]
     Active Substance: FENOFIBRATE
     Route: 048
     Dates: start: 201409

REACTIONS (5)
  - Drug eruption [Recovered/Resolved]
  - Pulmonary embolism [Recovering/Resolving]
  - Drug hypersensitivity [Recovered/Resolved]
  - Blood triglycerides increased [Not Recovered/Not Resolved]
  - Intervertebral disc degeneration [Unknown]

NARRATIVE: CASE EVENT DATE: 201403
